FAERS Safety Report 7499870-2 (Version None)
Quarter: 2011Q2

REPORT INFORMATION
  Report Type: 
  Country: None (occurrence: None)
  Receive Date: 20110524
  Receipt Date: 20110304
  Transmission Date: 20111010
  Serious: No
  Sender: FDA-Public Use
  Company Number: US-NOVEN-11US001920

PATIENT
  Sex: Female

DRUGS (1)
  1. DAYTRANA [Suspect]
     Indication: ATTENTION DEFICIT/HYPERACTIVITY DISORDER
     Dosage: 30 MG,  9 HRS, QD
     Route: 062

REACTIONS (3)
  - NO ADVERSE EVENT [None]
  - PRODUCT QUALITY ISSUE [None]
  - OFF LABEL USE [None]
